FAERS Safety Report 4779933-2 (Version None)
Quarter: 2005Q3

REPORT INFORMATION
  Report Type: 
  Country: None (occurrence: None)
  Receive Date: 20050927
  Receipt Date: 20050822
  Transmission Date: 20060218
  Serious: Yes (Other)
  Sender: FDA-Public Use
  Company Number: US-GLAXOSMITHKLINE-A0571212A

PATIENT
  Age: 29 Year
  Sex: Male
  Weight: 90.9 kg

DRUGS (4)
  1. LAMICTAL [Suspect]
     Indication: BIPOLAR DISORDER
     Dosage: 200MG UNKNOWN
     Route: 048
     Dates: start: 20050601, end: 20050818
  2. SEROQUEL [Concomitant]
     Indication: BIPOLAR DISORDER
     Dosage: 100MG TWICE PER DAY
     Route: 048
     Dates: start: 20050501
  3. KLONOPIN [Concomitant]
     Indication: BIPOLAR DISORDER
     Route: 048
     Dates: start: 20050501
  4. OXYCODONE HCL [Concomitant]
     Indication: NECK PAIN
     Route: 048
     Dates: start: 20050712

REACTIONS (8)
  - ALANINE AMINOTRANSFERASE INCREASED [None]
  - ANTINUCLEAR ANTIBODY POSITIVE [None]
  - ARTHRALGIA [None]
  - MALAISE [None]
  - MYALGIA [None]
  - PRURITUS [None]
  - RASH PAPULAR [None]
  - RHEUMATOID FACTOR INCREASED [None]
